FAERS Safety Report 9248316 (Version 1)
Quarter: 2013Q1

REPORT INFORMATION
  Report Type: Spontaneous
  Country: US (occurrence: None)
  Receive Date: 20130305
  Receipt Date: 20130305
  Transmission Date: 20140127
  Serious: Yes (Other)
  Sender: FDA-Public Use
  Company Number: 163-21880-12092352

PATIENT
  Age: 88 Year
  Sex: Male

DRUGS (1)
  1. REVLIMID (LENALIDOMIDE) [Suspect]
     Indication: MYELODYSPLASTIC SYNDROME
     Dates: start: 201209

REACTIONS (3)
  - Myelodysplastic syndrome [None]
  - Full blood count decreased [None]
  - Disease progression [None]
